FAERS Safety Report 7439958-5 (Version None)
Quarter: 2011Q2

REPORT INFORMATION
  Report Type: 
  Country: None (occurrence: None)
  Receive Date: 20110427
  Receipt Date: 20110414
  Transmission Date: 20111010
  Serious: Yes (Hospitalization, Other)
  Sender: FDA-Public Use
  Company Number: PHEH2006US03540

PATIENT
  Sex: Female
  Weight: 112.93 kg

DRUGS (31)
  1. ZANTAC [Concomitant]
  2. ARIMIDEX [Concomitant]
  3. ZOMETA [Suspect]
     Dosage: UNK
  4. ROCEPHIN [Concomitant]
     Indication: ARTHRITIS
  5. ZOMETA [Suspect]
     Dosage: 4 MG
     Dates: start: 20050101
  6. RADIATION THERAPY [Concomitant]
     Indication: METASTASES TO BONE
     Dosage: UNK
     Dates: start: 20081001
  7. CORTISONE [Concomitant]
  8. CLARITIN-D [Concomitant]
  9. NAPRELAN ^ELAN^ [Concomitant]
  10. OXYCODONE HCL [Concomitant]
  11. COLACE [Concomitant]
  12. MORPHINE SULFATE [Concomitant]
  13. DEXAMETHASONE [Concomitant]
  14. PEPCID [Concomitant]
  15. LOTRISONE [Concomitant]
  16. KEFLEX [Concomitant]
  17. ZOMETA [Suspect]
     Indication: METASTASES TO BONE
     Dosage: 4 MG, QMO
     Route: 042
     Dates: start: 20020318, end: 20030306
  18. VOLTAREN                           /00372303/ [Concomitant]
  19. TYLENOL W/ CODEINE NO. 3 [Concomitant]
  20. RESTORIL [Concomitant]
  21. RED BLOOD CELLS [Concomitant]
  22. VICOPROFEN [Concomitant]
  23. STEROIDS NOS [Concomitant]
  24. AREDIA [Suspect]
     Indication: METASTASES TO BONE
     Dosage: 90 MG, QMO
     Route: 042
     Dates: start: 19991121, end: 20020218
  25. LOVENOX [Concomitant]
  26. EPOGEN [Concomitant]
  27. MILK OF MAGNESIA TAB [Concomitant]
  28. AROMASIN [Concomitant]
  29. DIPHENHYDRAMINE [Concomitant]
     Dosage: 25 MG, QMO
  30. AUREOMICINA [Concomitant]
  31. COMPAZINE [Concomitant]

REACTIONS (71)
  - ACTINOMYCOSIS [None]
  - BREAST MASS [None]
  - HIP FRACTURE [None]
  - CARDIOMEGALY [None]
  - TENDONITIS [None]
  - SPINAL COMPRESSION FRACTURE [None]
  - CATHETER SITE RELATED REACTION [None]
  - JOINT RANGE OF MOTION DECREASED [None]
  - CHEST PAIN [None]
  - URINE ANALYSIS ABNORMAL [None]
  - HYPERTRIGLYCERIDAEMIA [None]
  - FLATULENCE [None]
  - SCOLIOSIS [None]
  - NECK PAIN [None]
  - ASTHENIA [None]
  - CYSTITIS [None]
  - HEADACHE [None]
  - PHARYNGEAL ERYTHEMA [None]
  - OSTEITIS [None]
  - TOOTH DISORDER [None]
  - POSTMENOPAUSAL HAEMORRHAGE [None]
  - FALL [None]
  - DISEASE PROGRESSION [None]
  - INTERSTITIAL LUNG DISEASE [None]
  - INTERVERTEBRAL DISC PROTRUSION [None]
  - SPUTUM DISCOLOURED [None]
  - EAR CANAL ERYTHEMA [None]
  - INCONTINENCE [None]
  - FISTULA [None]
  - LYMPHADENOPATHY [None]
  - BALANCE DISORDER [None]
  - ABDOMINAL HERNIA [None]
  - WALKING AID USER [None]
  - HYPERGLYCAEMIA [None]
  - MUSCLE SPASMS [None]
  - ABDOMINAL DISTENSION [None]
  - DERMATITIS [None]
  - OSTEONECROSIS OF JAW [None]
  - BONE LESION [None]
  - TOOTH INFECTION [None]
  - EXCESSIVE GRANULATION TISSUE [None]
  - BREAST CANCER METASTATIC [None]
  - BONE PAIN [None]
  - INTERVERTEBRAL DISC DEGENERATION [None]
  - CHEST DISCOMFORT [None]
  - OROPHARYNGEAL PAIN [None]
  - BACK PAIN [None]
  - METASTASES TO BONE [None]
  - OSTEOARTHRITIS [None]
  - GAIT DISTURBANCE [None]
  - COSTOCHONDRITIS [None]
  - SINUSITIS [None]
  - FATIGUE [None]
  - WEIGHT DECREASED [None]
  - UPPER RESPIRATORY TRACT INFECTION [None]
  - PRODUCTIVE COUGH [None]
  - URINARY TRACT INFECTION [None]
  - PRURITUS [None]
  - DIARRHOEA [None]
  - TOOTHACHE [None]
  - RHINORRHOEA [None]
  - PNEUMONITIS CHEMICAL [None]
  - EAR DISCOMFORT [None]
  - DENTAL CARIES [None]
  - ARTERIOSCLEROSIS [None]
  - HEPATIC STEATOSIS [None]
  - ARTHRALGIA [None]
  - PAIN IN EXTREMITY [None]
  - COUGH [None]
  - PATHOLOGICAL FRACTURE [None]
  - BLOOD PRESSURE INCREASED [None]
